FAERS Safety Report 23807946 (Version 1)
Quarter: 2024Q2

REPORT INFORMATION
  Report Type: Spontaneous
  Country: US (occurrence: US)
  Receive Date: 20240502
  Receipt Date: 20240502
  Transmission Date: 20240716
  Serious: Yes (Hospitalization)
  Sender: FDA-Public Use
  Company Number: US-PFIZER INC-PV202400056484

PATIENT
  Age: 80 Year
  Sex: Female

DRUGS (2)
  1. SUTENT [Suspect]
     Active Substance: SUNITINIB MALATE
     Indication: Metastatic renal cell carcinoma
     Dosage: 50 MG DAILY FOR THE FIRST CYCLE
     Route: 048
  2. SUTENT [Suspect]
     Active Substance: SUNITINIB MALATE
     Dosage: CURRENTLY ON LOW-DOSE SUNITINIB AT 37.5 MG 2 WEEKS ON AND 2 WEEKS OFF
     Route: 048

REACTIONS (6)
  - Pancytopenia [Unknown]
  - Electrolyte imbalance [Unknown]
  - Urinary tract infection [Unknown]
  - Neoplasm progression [Unknown]
  - Off label use [Unknown]
  - Product use issue [Unknown]
